FAERS Safety Report 14071099 (Version 1)
Quarter: 2017Q4

REPORT INFORMATION
  Report Type: Spontaneous
  Country: US (occurrence: US)
  Receive Date: 20171010
  Receipt Date: 20171010
  Transmission Date: 20180321
  Serious: No
  Sender: FDA-Public Use
  Company Number: US-JNJFOC-20170928372

PATIENT
  Sex: Female
  Weight: 55 kg

DRUGS (7)
  1. PROZAC [Concomitant]
     Active Substance: FLUOXETINE HYDROCHLORIDE
  2. FUROSEMIDE. [Concomitant]
     Active Substance: FUROSEMIDE
  3. IMBRUVICA [Suspect]
     Active Substance: IBRUTINIB
     Indication: CHRONIC LYMPHOCYTIC LEUKAEMIA
     Route: 048
     Dates: start: 20161021
  4. ALLOPURINOL. [Concomitant]
     Active Substance: ALLOPURINOL
  5. NIFEDICAL XL [Concomitant]
     Active Substance: NIFEDIPINE
  6. LASIX [Concomitant]
     Active Substance: FUROSEMIDE
  7. HYDROCODONE [Concomitant]
     Active Substance: HYDROCODONE

REACTIONS (1)
  - Adverse drug reaction [Unknown]
